FAERS Safety Report 6222159-6 (Version None)
Quarter: 2009Q2

REPORT INFORMATION
  Report Type: 
  Country: None (occurrence: None)
  Receive Date: 20090611
  Receipt Date: 20090602
  Transmission Date: 20091009
  Serious: Yes (Other)
  Sender: FDA-Public Use
  Company Number: BR-ROCHE-635493

PATIENT
  Age: 35 Year
  Sex: Female

DRUGS (1)
  1. ROACUTAN [Suspect]
     Indication: ACNE CYSTIC
     Dosage: OTHER INDICATION REPORTED AS: INGUINAL AND AXILLARY HIDRADENTIS
     Route: 048
     Dates: start: 20090201, end: 20090402

REACTIONS (2)
  - BLOOD PROLACTIN INCREASED [None]
  - GALACTORRHOEA [None]
